FAERS Safety Report 6435213-0 (Version None)
Quarter: 2009Q4

REPORT INFORMATION
  Report Type: 
  Country: None (occurrence: None)
  Receive Date: 20091110
  Receipt Date: 20091027
  Transmission Date: 20100525
  Serious: Yes (Other)
  Sender: FDA-Public Use
  Company Number: NZ-MYLANLABS-2009S1018727

PATIENT
  Sex: Female

DRUGS (1)
  1. HYPAM [Suspect]
     Indication: DRUG USE FOR UNKNOWN INDICATION

REACTIONS (3)
  - DEPRESSION [None]
  - LIVER DISORDER [None]
  - SWELLING FACE [None]
